FAERS Safety Report 13106332 (Version 8)
Quarter: 2017Q2

REPORT INFORMATION
  Report Type: Report from Study
  Country: US (occurrence: US)
  Receive Date: 20170111
  Receipt Date: 20170530
  Transmission Date: 20170830
  Serious: Yes (Hospitalization, Other)
  Sender: FDA-Public Use
  Company Number: US-PFIZER INC-2016596693

PATIENT
  Age: 66 Year
  Sex: Female

DRUGS (4)
  1. CYCLOBENZAPRINE. [Concomitant]
     Active Substance: CYCLOBENZAPRINE
     Indication: PAIN
     Dosage: 5 MG, 1X/DAY
     Dates: start: 20161008
  2. ACYCLOVIR. [Concomitant]
     Active Substance: ACYCLOVIR
     Indication: HERPES SIMPLEX
     Dosage: 400 MG, 2X/DAY
     Dates: start: 20161121
  3. METHADONE [Concomitant]
     Active Substance: METHADONE HYDROCHLORIDE
     Indication: PAIN
     Dosage: 5 MG, 1X/DAY
     Dates: start: 20161030
  4. IBRANCE [Suspect]
     Active Substance: PALBOCICLIB
     Indication: BREAST CANCER METASTATIC
     Dosage: 125 MG DAILY, CYCLIC FOR 21 DAYS ON AND 7 DAYS OFF
     Route: 048
     Dates: start: 20161025

REACTIONS (17)
  - Musculoskeletal chest pain [Unknown]
  - Anaemia [Not Recovered/Not Resolved]
  - Pain in extremity [Unknown]
  - Decreased appetite [Unknown]
  - Leukopenia [Not Recovered/Not Resolved]
  - Back pain [Unknown]
  - Joint swelling [Unknown]
  - Neutropenia [Not Recovered/Not Resolved]
  - Neoplasm progression [Unknown]
  - Dyspnoea [Unknown]
  - Drug dose omission [Unknown]
  - Dysgeusia [Not Recovered/Not Resolved]
  - Fatigue [Unknown]
  - Thirst [Unknown]
  - Pneumonia [Unknown]
  - Pulmonary mass [Unknown]
  - White blood cell count decreased [Not Recovered/Not Resolved]

NARRATIVE: CASE EVENT DATE: 2016
